FAERS Safety Report 22314742 (Version 3)
Quarter: 2023Q2

REPORT INFORMATION
  Report Type: Report from Study
  Country: US (occurrence: US)
  Receive Date: 20230512
  Receipt Date: 20230628
  Transmission Date: 20230722
  Serious: Yes (Hospitalization)
  Sender: FDA-Public Use
  Company Number: US-MYLANLABS-2023M1048647

PATIENT
  Age: 79 Year
  Sex: Male
  Weight: 71.89 kg

DRUGS (1)
  1. CLOZAPINE [Suspect]
     Active Substance: CLOZAPINE
     Indication: Schizophrenia
     Dosage: 100 MILLIGRAM, BID
     Route: 065
     Dates: start: 20220811

REACTIONS (14)
  - Hospitalisation [Unknown]
  - Red blood cell count decreased [Not Recovered/Not Resolved]
  - Haemoglobin decreased [Not Recovered/Not Resolved]
  - Haematocrit decreased [Not Recovered/Not Resolved]
  - Neutrophil percentage decreased [Not Recovered/Not Resolved]
  - Blood potassium decreased [Unknown]
  - Blood glucose increased [Unknown]
  - Blood creatinine decreased [Unknown]
  - Blood calcium decreased [Unknown]
  - Immature granulocyte count increased [Recovered/Resolved]
  - Mean cell volume increased [Not Recovered/Not Resolved]
  - Mean cell haemoglobin concentration decreased [Recovered/Resolved]
  - White blood cell count decreased [Recovered/Resolved]
  - Red cell distribution width increased [Recovered/Resolved]

NARRATIVE: CASE EVENT DATE: 20220818
